FAERS Safety Report 16613081 (Version 1)
Quarter: 2019Q3

REPORT INFORMATION
  Report Type: Spontaneous
  Country: US (occurrence: US)
  Receive Date: 20190722
  Receipt Date: 20190722
  Transmission Date: 20191004
  Serious: Yes (Disabling)
  Sender: FDA-Public Use
  Company Number: None

PATIENT
  Age: 62 Year
  Sex: Female
  Weight: 45 kg

DRUGS (7)
  1. LYSINE [Concomitant]
     Active Substance: LYSINE
  2. FLUORORURACIL 5% [Suspect]
     Active Substance: FLUOROURACIL
     Indication: PRECANCEROUS SKIN LESION
     Route: 061
     Dates: start: 20180104, end: 20180118
  3. FISH OIL [Concomitant]
     Active Substance: FISH OIL
  4. RETIN-A [Concomitant]
     Active Substance: TRETINOIN
  5. METRONIDAZOLE. [Concomitant]
     Active Substance: METRONIDAZOLE
  6. TURMERIC [Concomitant]
     Active Substance: HERBALS\TURMERIC
  7. CALCIUM [Concomitant]
     Active Substance: CALCIUM

REACTIONS (4)
  - Eye infection [None]
  - Facial pain [None]
  - Application site pain [None]
  - Facial nerve disorder [None]

NARRATIVE: CASE EVENT DATE: 20180118
